FAERS Safety Report 25538965 (Version 6)
Quarter: 2025Q4

REPORT INFORMATION
  Report Type: Spontaneous
  Country: US (occurrence: US)
  Receive Date: 20250710
  Receipt Date: 20251118
  Transmission Date: 20260118
  Serious: No
  Sender: PFIZER
  Company Number: US-PFIZER INC-202500137445

PATIENT
  Age: 16 Year
  Sex: Male
  Weight: 74.83 kg

DRUGS (2)
  1. GENOTROPIN [Suspect]
     Active Substance: SOMATROPIN
     Indication: Growth hormone deficiency
     Dosage: 2.9 MG, DAILY (ALTERNATES BETWEEN 2.8MG AND 3MG )
  2. ANASTROZOLE [Concomitant]
     Active Substance: ANASTROZOLE
     Indication: Oestrogen therapy
     Dosage: 1 MG, 1X/DAY
     Route: 048
     Dates: start: 2023

REACTIONS (4)
  - Drug dose omission by device [Unknown]
  - Wrong technique in device usage process [Unknown]
  - Device leakage [Unknown]
  - Device breakage [Unknown]
